FAERS Safety Report 24065481 (Version 1)
Quarter: 2024Q3

REPORT INFORMATION
  Report Type: Spontaneous
  Country: US (occurrence: None)
  Receive Date: 20240708
  Receipt Date: 20240708
  Transmission Date: 20241016
  Serious: Yes (Hospitalization)
  Sender: Public
  Company Number: None

PATIENT
  Sex: Female

DRUGS (4)
  1. MYCOPHENOLATE MOFETIL [Suspect]
     Active Substance: MYCOPHENOLATE MOFETIL
     Indication: Systemic scleroderma
     Dosage: FREQUENCY : TWICE A DAY;?
     Route: 048
     Dates: start: 202402
  2. TYVASO DPI MAINT KIT POW [Concomitant]
  3. TYVASO DPI MAINT KIT PWD [Concomitant]
  4. OFEV [Concomitant]

REACTIONS (2)
  - Therapy interrupted [None]
  - Surgery [None]
